FAERS Safety Report 8065833-1 (Version None)
Quarter: 2012Q1

REPORT INFORMATION
  Report Type: 
  Country: None (occurrence: None)
  Receive Date: 20120124
  Receipt Date: 20120118
  Transmission Date: 20120608
  Serious: Yes (Death, Hospitalization)
  Sender: FDA-Public Use
  Company Number: DE-BRISTOL-MYERS SQUIBB COMPANY-15647746

PATIENT
  Age: 71 Year
  Sex: Male
  Weight: 146 kg

DRUGS (3)
  1. CETUXIMAB [Suspect]
     Indication: NON-SMALL CELL LUNG CANCER
     Dosage: RECENT INFUSION ON 03MAR11
     Route: 042
     Dates: start: 20110106
  2. CARBOPLATIN [Suspect]
     Indication: NON-SMALL CELL LUNG CANCER
     Dosage: RECENT INFUSION ON 17FEB11
     Route: 042
     Dates: start: 20110106
  3. GEMCITABINE [Suspect]
     Indication: NON-SMALL CELL LUNG CANCER
     Dosage: RECENT INFUSION ON 24FEB11
     Route: 042
     Dates: start: 20110106

REACTIONS (5)
  - ANAEMIA [None]
  - GENERALISED OEDEMA [None]
  - GENERAL PHYSICAL HEALTH DETERIORATION [None]
  - PETECHIAE [None]
  - BONE MARROW FAILURE [None]
